FAERS Safety Report 8079692-4 (Version None)
Quarter: 2012Q1

REPORT INFORMATION
  Report Type: 
  Country: None (occurrence: None)
  Receive Date: 20120128
  Receipt Date: 20110802
  Transmission Date: 20120608
  Serious: No
  Sender: FDA-Public Use
  Company Number: US-ABBOTT-11P-163-0840987-00

PATIENT
  Sex: Female
  Weight: 85.806 kg

DRUGS (16)
  1. SIMVASTATIN [Concomitant]
     Indication: BLOOD CHOLESTEROL INCREASED
  2. OXYBUTYNIN [Concomitant]
     Indication: MICTURITION URGENCY
  3. OXYBUTYNIN [Concomitant]
     Indication: URINARY INCONTINENCE
  4. ASPIRIN [Concomitant]
     Indication: PRODUCT USED FOR UNKNOWN INDICATION
     Dosage: COATED DAILY
  5. SERTRALINE HYDROCHLORIDE [Concomitant]
     Indication: DEPRESSION
  6. BONIVA [Concomitant]
     Indication: BONE DISORDER
  7. HUMIRA [Suspect]
     Dates: start: 20110720, end: 20110720
  8. HUMIRA [Suspect]
     Indication: CROHN'S DISEASE
     Route: 058
     Dates: start: 20110706, end: 20110706
  9. ASACOL [Concomitant]
     Indication: CROHN'S DISEASE
     Route: 048
  10. MULTI-VITAMIN [Concomitant]
     Indication: VITAMIN SUPPLEMENTATION
  11. HUMALOG [Concomitant]
     Indication: TYPE 2 DIABETES MELLITUS
  12. AZASAN [Concomitant]
     Indication: PRODUCT USED FOR UNKNOWN INDICATION
  13. CALCIUM GLUCONATE [Concomitant]
     Indication: SUPPLEMENTATION THERAPY
  14. NEXIUM [Concomitant]
     Indication: GASTROOESOPHAGEAL REFLUX DISEASE
  15. LORAZEPAM [Concomitant]
     Indication: ANXIETY
  16. FOLIC ACID [Concomitant]
     Indication: SUPPLEMENTATION THERAPY
     Route: 048

REACTIONS (6)
  - HEADACHE [None]
  - ABDOMINAL PAIN [None]
  - FATIGUE [None]
  - VISION BLURRED [None]
  - NAUSEA [None]
  - CATARACT [None]
